FAERS Safety Report 7047644-9 (Version None)
Quarter: 2010Q4

REPORT INFORMATION
  Report Type: 
  Country: None (occurrence: None)
  Receive Date: 20101014
  Receipt Date: 20101014
  Transmission Date: 20110411
  Serious: No
  Sender: FDA-Public Use
  Company Number: None

PATIENT
  Age: 50 Year
  Sex: Female
  Weight: 74.8435 kg

DRUGS (2)
  1. OXYCONTIN [Suspect]
     Indication: INTERVERTEBRAL DISC DEGENERATION
     Dosage: 40 MG EVERY 8 HOURS PO
     Route: 048
     Dates: start: 20100821, end: 20101013
  2. OXYCONTIN [Suspect]
     Indication: PAIN
     Dosage: 40 MG EVERY 8 HOURS PO
     Route: 048
     Dates: start: 20100821, end: 20101013

REACTIONS (15)
  - ABDOMINAL DISTENSION [None]
  - ABDOMINAL PAIN UPPER [None]
  - BLOOD PRESSURE INCREASED [None]
  - DIZZINESS [None]
  - DRUG INEFFECTIVE [None]
  - DYSGEUSIA [None]
  - FEELING ABNORMAL [None]
  - HYPOPHAGIA [None]
  - INADEQUATE ANALGESIA [None]
  - INFLUENZA LIKE ILLNESS [None]
  - MALAISE [None]
  - MIGRAINE [None]
  - MUSCULOSKELETAL CHEST PAIN [None]
  - NAUSEA [None]
  - PAIN [None]
